FAERS Safety Report 18973673 (Version 1)
Quarter: 2021Q1

REPORT INFORMATION
  Report Type: Spontaneous
  Country: US (occurrence: US)
  Receive Date: 20210305
  Receipt Date: 20210305
  Transmission Date: 20210420
  Serious: Yes (Hospitalization)
  Sender: FDA-Public Use
  Company Number: None

PATIENT
  Age: 65 Year
  Sex: Male

DRUGS (2)
  1. AFINITOR [Suspect]
     Active Substance: EVEROLIMUS
     Indication: MALIGNANT NEOPLASM OF THYMUS
     Route: 048
     Dates: start: 20210208
  2. NONE LISTED [Concomitant]

REACTIONS (1)
  - Pharyngeal swelling [None]

NARRATIVE: CASE EVENT DATE: 20210217
